FAERS Safety Report 23455796 (Version 2)
Quarter: 2024Q1

REPORT INFORMATION
  Report Type: Other
  Country: US (occurrence: None)
  Receive Date: 20240130
  Receipt Date: 20240202
  Transmission Date: 20240410
  Serious: Yes (Hospitalization)
  Sender: FDA-Public Use
  Company Number: US-ROCHE-3321366

PATIENT
  Age: 3 Year
  Sex: Female
  Weight: 10.2 kg

DRUGS (5)
  1. EVRYSDI [Suspect]
     Active Substance: RISDIPLAM
     Indication: Spinal muscular atrophy
     Dosage: 0.75 MG/ML
     Route: 048
     Dates: start: 20230314, end: 20230326
  2. EVRYSDI [Suspect]
     Active Substance: RISDIPLAM
     Indication: Neuromyopathy
     Dosage: STRENGTH: 0.75 MG/ML
     Route: 048
     Dates: start: 20230409
  3. EVRYSDI [Suspect]
     Active Substance: RISDIPLAM
     Dosage: TAKE 2.4MG (3.2ML) BY MOUTH ONCE DAILY
     Route: 048
  4. EVRYSDI [Suspect]
     Active Substance: RISDIPLAM
     Dosage: 3.9 ML OR 2.9 MG
     Route: 048
     Dates: start: 202304
  5. ALBUTEROL [Concomitant]
     Active Substance: ALBUTEROL

REACTIONS (13)
  - Diarrhoea [Recovered/Resolved]
  - Oral discharge [Recovering/Resolving]
  - Vomiting [Recovered/Resolved]
  - Weight increased [Not Recovered/Not Resolved]
  - Pulmonary congestion [Recovering/Resolving]
  - Productive cough [Unknown]
  - Retching [Recovered/Resolved]
  - Off label use [Unknown]
  - Product prescribing issue [Unknown]
  - Illness [Unknown]
  - Respiratory failure [Recovered/Resolved]
  - Respiratory syncytial virus infection [Recovered/Resolved]
  - Diarrhoea [Recovering/Resolving]

NARRATIVE: CASE EVENT DATE: 20230319
